FAERS Safety Report 5729661-1 (Version None)
Quarter: 2008Q2

REPORT INFORMATION
  Report Type: 
  Country: None (occurrence: None)
  Receive Date: 20080501
  Receipt Date: 20080421
  Transmission Date: 20081010
  Serious: Yes (Hospitalization, Disabling, Other)
  Sender: FDA-Public Use
  Company Number: POMP-1000145

PATIENT
  Age: 19 Month
  Sex: Male

DRUGS (1)
  1. MYOZYME [Suspect]
     Indication: GLYCOGEN STORAGE DISEASE TYPE II

REACTIONS (10)
  - ASPIRATION [None]
  - CARDIOMYOPATHY [None]
  - DEAFNESS NEUROSENSORY [None]
  - DISEASE PROGRESSION [None]
  - HYPOTENSION [None]
  - HYPOTONIA [None]
  - INFUSION RELATED REACTION [None]
  - LUNG INFECTION [None]
  - RASH [None]
  - TACHYPNOEA [None]
